FAERS Safety Report 7391072-3 (Version None)
Quarter: 2011Q2

REPORT INFORMATION
  Report Type: 
  Country: None (occurrence: None)
  Receive Date: 20110404
  Receipt Date: 20110324
  Transmission Date: 20111010
  Serious: Yes (Hospitalization)
  Sender: FDA-Public Use
  Company Number: DE-CELGENEUS-062-21880-11021896

PATIENT
  Age: 75 Year
  Sex: Male

DRUGS (15)
  1. DEXAMETHASONE [Concomitant]
     Indication: MULTIPLE MYELOMA
     Route: 065
     Dates: start: 20100701, end: 20101001
  2. IBANDONAT [Concomitant]
     Dosage: .2 MILLIGRAM
     Route: 051
  3. PANTOPRAZOLE [Concomitant]
     Indication: PROPHYLAXIS
     Dosage: 20 MILLIGRAM
     Route: 048
  4. FLUVASTATIN [Concomitant]
     Dosage: 40 MILLIGRAM
     Route: 048
  5. AMLODIPINE BESYLATE [Concomitant]
     Indication: HYPERTENSION
     Dosage: 10 MILLIGRAM
     Route: 048
  6. DICLOFENAC [Concomitant]
     Route: 065
  7. REVLIMID [Suspect]
     Dosage: 25 MILLIGRAM
     Route: 048
     Dates: start: 20100907, end: 20100927
  8. MARCUMAR [Concomitant]
     Route: 065
  9. DICLOFENAC [Concomitant]
  10. REVLIMID [Suspect]
     Indication: MULTIPLE MYELOMA
     Dosage: 25 MILLIGRAM
     Route: 048
     Dates: start: 20100713, end: 20100802
  11. REVLIMID [Suspect]
     Dosage: 25 MILLIGRAM
     Route: 048
     Dates: start: 20100810, end: 20100830
  12. HYDROCHLORTHIAZID [Concomitant]
     Indication: DIURETIC THERAPY
     Route: 048
  13. REVLIMID [Suspect]
     Dosage: 25 MILLIGRAM
     Route: 048
     Dates: start: 20101102, end: 20101122
  14. REVLIMID [Suspect]
     Dosage: 25 MILLIGRAM
     Route: 048
     Dates: start: 20101005, end: 20101025
  15. CLEXANE [Concomitant]
     Indication: THROMBOSIS
     Dosage: 100 MILLIGRAM
     Route: 058

REACTIONS (1)
  - BLADDER CANCER [None]
